FAERS Safety Report 20404776 (Version 2)
Quarter: 2022Q1

REPORT INFORMATION
  Report Type: Spontaneous
  Country: DE (occurrence: DE)
  Receive Date: 20220131
  Receipt Date: 20220218
  Transmission Date: 20220423
  Serious: Yes (Hospitalization, Other)
  Sender: FDA-Public Use
  Company Number: DE-NOVARTISPH-NVSC2020DE360676

PATIENT
  Age: 79 Year
  Sex: Female
  Weight: 70 kg

DRUGS (6)
  1. ELTROMBOPAG OLAMINE [Suspect]
     Active Substance: ELTROMBOPAG OLAMINE
     Indication: Thrombocytopenia
     Dosage: 50 MG (1-0-0)
     Route: 065
     Dates: start: 20180426, end: 201805
  2. ELTROMBOPAG OLAMINE [Suspect]
     Active Substance: ELTROMBOPAG OLAMINE
     Indication: Aplastic anaemia
     Dosage: 75 MG (1-0-0)
     Route: 065
     Dates: start: 20180516, end: 2018
  3. CYCLOSPORINE [Suspect]
     Active Substance: CYCLOSPORINE
     Indication: Thrombocytopenia
     Dosage: 250 MG (1-0-1)
     Route: 048
     Dates: start: 20180426, end: 201805
  4. CYCLOSPORINE [Suspect]
     Active Substance: CYCLOSPORINE
     Indication: Aplastic anaemia
     Dosage: 250 MG (1-0-1)
     Route: 048
     Dates: start: 201805, end: 2018
  5. CYCLOSPORINE [Suspect]
     Active Substance: CYCLOSPORINE
     Dosage: 150 MG (1-0-1)
     Route: 048
     Dates: start: 201806, end: 2018
  6. CYCLOSPORINE [Suspect]
     Active Substance: CYCLOSPORINE
     Dosage: 50 MG (3-0-2)
     Route: 048
     Dates: start: 2018

REACTIONS (13)
  - Febrile infection [Unknown]
  - Aphthous ulcer [Unknown]
  - Thrombocytopenia [Unknown]
  - Aplastic anaemia [Unknown]
  - Mucosal inflammation [Recovering/Resolving]
  - Mouth ulceration [Unknown]
  - Oral pain [Recovering/Resolving]
  - Decreased appetite [Unknown]
  - C-reactive protein increased [Recovering/Resolving]
  - Body temperature increased [Recovering/Resolving]
  - Tonsillar hypertrophy [Unknown]
  - Mouth haemorrhage [Recovering/Resolving]
  - Asthenia [Unknown]

NARRATIVE: CASE EVENT DATE: 20180401
